FAERS Safety Report 14146630 (Version 2)
Quarter: 2017Q4

REPORT INFORMATION
  Report Type: Spontaneous
  Country: US (occurrence: US)
  Receive Date: 20171031
  Receipt Date: 20171206
  Transmission Date: 20180321
  Serious: Yes (Hospitalization, Other)
  Sender: FDA-Public Use
  Company Number: US-GLAXOSMITHKLINE-US2017GSK166298

PATIENT
  Sex: Male

DRUGS (9)
  1. TANZEUM [Suspect]
     Active Substance: ALBIGLUTIDE
     Indication: TYPE 2 DIABETES MELLITUS
     Dosage: 50 MG, WE
     Route: 058
  2. BUPROPION. [Concomitant]
     Active Substance: BUPROPION
  3. LIPITOR [Concomitant]
     Active Substance: ATORVASTATIN CALCIUM
  4. METFORMIN [Concomitant]
     Active Substance: METFORMIN HYDROCHLORIDE
  5. CYMBALTA [Concomitant]
     Active Substance: DULOXETINE HYDROCHLORIDE
  6. GLIPIZIDE. [Concomitant]
     Active Substance: GLIPIZIDE
  7. ATENOLOL. [Concomitant]
     Active Substance: ATENOLOL
  8. ARIPIPRAZOLE. [Concomitant]
     Active Substance: ARIPIPRAZOLE
  9. VALSARTAN. [Concomitant]
     Active Substance: VALSARTAN

REACTIONS (8)
  - Dermatitis [Recovering/Resolving]
  - Cellulitis [Recovering/Resolving]
  - Product quality issue [Unknown]
  - Skin discolouration [Recovering/Resolving]
  - Accidental exposure to product [Unknown]
  - Joint swelling [Recovering/Resolving]
  - Wrong technique in device usage process [Unknown]
  - Underdose [Unknown]
